FAERS Safety Report 5718315-3 (Version None)
Quarter: 2008Q2

REPORT INFORMATION
  Report Type: 
  Country: None (occurrence: None)
  Receive Date: 20080425
  Receipt Date: 20080421
  Transmission Date: 20081010
  Serious: Yes (Hospitalization)
  Sender: FDA-Public Use
  Company Number: ES-BRISTOL-MYERS SQUIBB COMPANY-14159495

PATIENT
  Age: 66 Year
  Sex: Male

DRUGS (3)
  1. CISPLATIN [Suspect]
     Indication: NEOPLASM MALIGNANT
     Route: 042
     Dates: start: 20080214
  2. LAPATINIB [Suspect]
     Indication: NEOPLASM MALIGNANT
     Dosage: FORM = TABS
     Route: 048
     Dates: start: 20080206
  3. RADIOTHERAPY [Suspect]
     Indication: NEOPLASM MALIGNANT
     Dosage: 10 DOSAGEFORM = 10 GRAY
     Route: 061
     Dates: start: 20080211

REACTIONS (1)
  - SOFT TISSUE INFLAMMATION [None]
